FAERS Safety Report 8113716-0 (Version None)
Quarter: 2011Q4

REPORT INFORMATION
  Report Type: 
  Country: None (occurrence: None)
  Receive Date: 20111227
  Receipt Date: 20111117
  Transmission Date: 20120403
  Serious: Yes (Other)
  Sender: FDA-Public Use
  Company Number: PHEH2011US03437

PATIENT
  Age: 52 Year
  Sex: Male

DRUGS (7)
  1. REMERON [Concomitant]
  2. GILENYA [Suspect]
     Indication: MULTIPLE SCLEROSIS
     Dosage: 0.5 MG, DAILY, ORAL
     Route: 048
     Dates: start: 20110817
  3. GABAPENTIN [Concomitant]
  4. SEROQUEL [Concomitant]
  5. KEPPRA [Concomitant]
  6. ANTADINE (AMANTADINE HYDROCHLORIDE) [Concomitant]
  7. BACLOFEN [Concomitant]

REACTIONS (7)
  - HEADACHE [None]
  - MACULAR OEDEMA [None]
  - DIPLOPIA [None]
  - VISION BLURRED [None]
  - VISUAL IMPAIRMENT [None]
  - EYE PAIN [None]
  - SCOTOMA [None]
